FAERS Safety Report 5737125-4 (Version None)
Quarter: 2008Q2

REPORT INFORMATION
  Report Type: 
  Country: None (occurrence: None)
  Receive Date: 20080513
  Receipt Date: 20080513
  Transmission Date: 20081010
  Serious: Yes (Other)
  Sender: FDA-Public Use
  Company Number: None

PATIENT
  Age: 54 Year
  Sex: Male

DRUGS (2)
  1. DIGITEK 0.125MG AMIDE-BERTEK- [Suspect]
     Dosage: 0.125MG DAILY PO
     Route: 048
     Dates: start: 20080205, end: 20080507
  2. DIGITEK 0.125MG AMIDE-BERTEK- [Suspect]
     Dosage: 0.125MG DAILY PO
     Route: 048
     Dates: start: 20080114, end: 20080213

REACTIONS (2)
  - DIARRHOEA [None]
  - THERAPEUTIC AGENT TOXICITY [None]
